FAERS Safety Report 9369146 (Version 1)
Quarter: 2013Q2

REPORT INFORMATION
  Report Type: Spontaneous
  Country: US (occurrence: None)
  Receive Date: 20130625
  Receipt Date: 20130625
  Transmission Date: 20140414
  Serious: Yes (Death, Hospitalization)
  Sender: FDA-Public Use
  Company Number: None

PATIENT
  Age: 61 Year
  Sex: Female
  Weight: 66.23 kg

DRUGS (1)
  1. LISINOPRIL [Suspect]
     Indication: BLOOD PRESSURE
     Route: 048
     Dates: start: 20120316, end: 20120912

REACTIONS (7)
  - Sensitivity of teeth [None]
  - Erythema [None]
  - Eye pruritus [None]
  - Skin discolouration [None]
  - Dysmorphism [None]
  - Ocular hyperaemia [None]
  - Conjunctivitis infective [None]
